FAERS Safety Report 7499549-7 (Version None)
Quarter: 2011Q2

REPORT INFORMATION
  Report Type: 
  Country: None (occurrence: None)
  Receive Date: 20110524
  Receipt Date: 20110519
  Transmission Date: 20111010
  Serious: Yes (Life-Threatening)
  Sender: FDA-Public Use
  Company Number: PHHY2011US43296

PATIENT
  Sex: Male

DRUGS (2)
  1. EXJADE [Suspect]
     Indication: PROSTATE CANCER
     Dosage: 1625 MG, DAILY
     Route: 048
     Dates: start: 20101022
  2. EXJADE [Suspect]
     Indication: IRON OVERLOAD

REACTIONS (1)
  - TERMINAL STATE [None]
